FAERS Safety Report 16431634 (Version 1)
Quarter: 2019Q2

REPORT INFORMATION
  Report Type: Spontaneous
  Country: US (occurrence: US)
  Receive Date: 20190613
  Receipt Date: 20190613
  Transmission Date: 20190711
  Serious: Yes (Hospitalization)
  Sender: FDA-Public Use
  Company Number: None

PATIENT
  Age: 77 Year
  Sex: Male
  Weight: 94.5 kg

DRUGS (1)
  1. SULFAMETHOXAZOLE-TMP DS [Suspect]
     Active Substance: SULFAMETHOXAZOLE\TRIMETHOPRIM
     Indication: CELLULITIS
     Dosage: ?          OTHER STRENGTH:UNKNOWN;?
     Route: 048
     Dates: start: 20190509, end: 20190516

REACTIONS (5)
  - Asthenia [None]
  - Product label issue [None]
  - Dizziness [None]
  - Confusional state [None]
  - Blood sodium decreased [None]

NARRATIVE: CASE EVENT DATE: 20190517
